FAERS Safety Report 11499692 (Version 1)
Quarter: 2015Q3

REPORT INFORMATION
  Report Type: Spontaneous
  Country: US (occurrence: None)
  Receive Date: 20150910
  Receipt Date: 20150910
  Transmission Date: 20151125
  Serious: Yes (Disabling)
  Sender: FDA-Public Use
  Company Number: None

PATIENT
  Age: 61 Year
  Sex: Male
  Weight: 248 kg

DRUGS (5)
  1. CIPROFLOXACIN. [Suspect]
     Active Substance: CIPROFLOXACIN
     Indication: INFECTION
     Dosage: 20 PILLS
     Route: 048
     Dates: start: 20111126, end: 20130813
  2. METOPOLOL TAR [Concomitant]
     Active Substance: METOPROLOL TARTRATE
  3. VERAPAMIL [Concomitant]
     Active Substance: VERAPAMIL HYDROCHLORIDE
  4. OMEPRAZOLE. [Concomitant]
     Active Substance: OMEPRAZOLE
  5. VTAMINS 3D [Concomitant]

REACTIONS (1)
  - Neuropathy peripheral [None]

NARRATIVE: CASE EVENT DATE: 20111226
